FAERS Safety Report 8567865-3 (Version None)
Quarter: 2012Q3

REPORT INFORMATION
  Report Type: 
  Country: None (occurrence: None)
  Receive Date: 20120803
  Receipt Date: 20110906
  Transmission Date: 20120928
  Serious: No
  Sender: FDA-Public Use
  Company Number: US-BRISTOL-MYERS SQUIBB COMPANY-15967342

PATIENT
  Sex: Female

DRUGS (2)
  1. GLYBURIDE AND METFORMIN HYDROCHLORIDE [Suspect]
     Dosage: 1 DF-25 MG/500 MG.
     Route: 048
  2. ACTOS [Suspect]
     Route: 048

REACTIONS (1)
  - BLOOD GLUCOSE INCREASED [None]
